FAERS Safety Report 7911505-0 (Version None)
Quarter: 2011Q4

REPORT INFORMATION
  Report Type: 
  Country: None (occurrence: None)
  Receive Date: 20111101
  Receipt Date: 20110726
  Transmission Date: 20120403
  Serious: Yes (Hospitalization, Other)
  Sender: FDA-Public Use
  Company Number: 292224USA

PATIENT
  Age: 40 Year
  Sex: Female

DRUGS (3)
  1. SPRINTEC [Suspect]
     Dates: start: 20070801
  2. VENLAFAXINE [Concomitant]
  3. ARIPIPRAZOLE [Concomitant]

REACTIONS (1)
  - PULMONARY EMBOLISM [None]
